FAERS Safety Report 9315877 (Version 5)
Quarter: 2014Q1

REPORT INFORMATION
  Report Type: Report from Study
  Country: GB (occurrence: GB)
  Receive Date: 20130530
  Receipt Date: 20140206
  Transmission Date: 20141002
  Serious: Yes (Death, Hospitalization, Other)
  Sender: FDA-Public Use
  Company Number: GB-ROCHE-1228782

PATIENT
  Age: 66 Year
  Sex: Male
  Weight: 79 kg

DRUGS (1)
  1. BEVACIZUMAB [Suspect]
     Indication: COLORECTAL CANCER METASTATIC
     Route: 065
     Dates: start: 20121203, end: 20130130

REACTIONS (2)
  - Disease progression [Fatal]
  - Jaundice [Recovered/Resolved with Sequelae]
